FAERS Safety Report 4724436-4 (Version None)
Quarter: 2005Q3

REPORT INFORMATION
  Report Type: 
  Country: None (occurrence: None)
  Receive Date: 20050722
  Receipt Date: 20050722
  Transmission Date: 20060218
  Serious: Yes (Death)
  Sender: FDA-Public Use
  Company Number: None

PATIENT
  Age: 59 Year
  Sex: Male
  Weight: 54.4316 kg

DRUGS (2)
  1. FENTANYL [Suspect]
     Indication: BONE NEOPLASM MALIGNANT
     Dosage: INTRAVENOUS
     Route: 042
     Dates: start: 20041209, end: 20050118
  2. FENTANYL [Suspect]
     Indication: CANCER PAIN
     Dosage: INTRAVENOUS
     Route: 042
     Dates: start: 20041209, end: 20050118

REACTIONS (10)
  - COMA [None]
  - CONFUSIONAL STATE [None]
  - DIFFICULTY IN WALKING [None]
  - DIZZINESS [None]
  - FATIGUE [None]
  - OVERDOSE [None]
  - PAIN [None]
  - RESPIRATORY DISORDER [None]
  - SOMNOLENCE [None]
  - SPEECH DISORDER [None]
